FAERS Safety Report 8756121 (Version 6)
Quarter: 2013Q1

REPORT INFORMATION
  Report Type: Spontaneous
  Country: US (occurrence: US)
  Receive Date: 20120828
  Receipt Date: 20130123
  Transmission Date: 20140127
  Serious: No
  Sender: FDA-Public Use
  Company Number: US-PFIZER INC-2012208776

PATIENT
  Age: 66 Year
  Sex: Female
  Weight: 76 kg

DRUGS (8)
  1. SPIRONOLACTONE [Suspect]
     Indication: HYPERTENSION
     Dosage: 25 MG, UNK
     Route: 048
  2. SPIRONOLACTONE [Suspect]
     Indication: BLOOD ALDOSTERONE DECREASED
     Dosage: 50 MG, UNK
     Route: 048
  3. SPIRONOLACTONE [Suspect]
     Indication: BLOOD POTASSIUM DECREASED
     Dosage: 100 MG, UNK
     Route: 048
  4. SPIRONOLACTONE [Suspect]
     Dosage: 50 MG (MORNING) AND 25 MG (NIGHT)
     Route: 048
     Dates: end: 20120825
  5. BENICAR [Concomitant]
     Indication: HYPERTENSION
     Dosage: 40 MG, DAILY
  6. BENICAR [Concomitant]
     Dosage: 20 MG, DAILY
  7. LEVOTHYROXINE [Concomitant]
     Indication: HYPOTHYROIDISM
     Dosage: 2.5 MG, DAILY
  8. LOVASTATIN [Concomitant]
     Indication: BLOOD CHOLESTEROL INCREASED
     Dosage: 20 MG, DAILY

REACTIONS (17)
  - Renal disorder [Not Recovered/Not Resolved]
  - Renal function test abnormal [Unknown]
  - Drug ineffective [Not Recovered/Not Resolved]
  - Hair texture abnormal [Not Recovered/Not Resolved]
  - Dry skin [Not Recovered/Not Resolved]
  - Dry eye [Not Recovered/Not Resolved]
  - Asthenia [Not Recovered/Not Resolved]
  - Skin odour abnormal [Not Recovered/Not Resolved]
  - Anosmia [Not Recovered/Not Resolved]
  - Bowel movement irregularity [Not Recovered/Not Resolved]
  - Visual impairment [Not Recovered/Not Resolved]
  - Malaise [Not Recovered/Not Resolved]
  - Muscle rigidity [Not Recovered/Not Resolved]
  - Head discomfort [Not Recovered/Not Resolved]
  - Diarrhoea [Not Recovered/Not Resolved]
  - Parosmia [Unknown]
  - Product odour abnormal [Unknown]
